FAERS Safety Report 7770251-7 (Version None)
Quarter: 2011Q3

REPORT INFORMATION
  Report Type: 
  Country: None (occurrence: None)
  Receive Date: 20110922
  Receipt Date: 20110628
  Transmission Date: 20111222
  Serious: No
  Sender: FDA-Public Use
  Company Number: US-ASTRAZENECA-2011SE38967

PATIENT
  Age: 38 Year
  Sex: Female

DRUGS (9)
  1. BUSPAR [Concomitant]
  2. VITAMIN D [Concomitant]
  3. FERROUS SULFATE TAB [Concomitant]
  4. SEROQUEL XR [Suspect]
     Indication: BIPOLAR DISORDER
     Route: 048
     Dates: start: 20100101
  5. ADDERALL 5 [Concomitant]
  6. SEROQUEL XR [Suspect]
     Indication: SLEEP DISORDER
     Route: 048
     Dates: start: 20100101
  7. CLONAZEPAM [Concomitant]
  8. TOPIRAMATE [Concomitant]
  9. ZOLOFT [Concomitant]

REACTIONS (5)
  - DEPRESSION [None]
  - ANXIETY [None]
  - DRUG DOSE OMISSION [None]
  - NERVOUSNESS [None]
  - ATTENTION DEFICIT/HYPERACTIVITY DISORDER [None]
